FAERS Safety Report 6681649-2 (Version None)
Quarter: 2010Q2

REPORT INFORMATION
  Report Type: 
  Country: None (occurrence: None)
  Receive Date: 20100413
  Receipt Date: 20100413
  Transmission Date: 20101027
  Serious: Yes (Life-Threatening, Hospitalization, Other)
  Sender: FDA-Public Use
  Company Number: None

PATIENT
  Age: 59 Year
  Sex: Female
  Weight: 83.9154 kg

DRUGS (2)
  1. LEVAQUIN [Suspect]
     Indication: HYPERSENSITIVITY
     Dosage: 1 TABLET ONCE A DAY PO
     Route: 048
     Dates: start: 20100402, end: 20100408
  2. PREDNISONE [Suspect]
     Dosage: 1 TABLET TWICE A DAY PO
     Route: 048
     Dates: start: 20100407, end: 20100417

REACTIONS (7)
  - BLOOD PRESSURE DECREASED [None]
  - DYSPHAGIA [None]
  - DYSPNOEA [None]
  - GRAND MAL CONVULSION [None]
  - MIGRAINE [None]
  - PHARYNGEAL OEDEMA [None]
  - TREMOR [None]
